FAERS Safety Report 4904248-9 (Version None)
Quarter: 2006Q1

REPORT INFORMATION
  Report Type: 
  Country: None (occurrence: None)
  Receive Date: 20060208
  Receipt Date: 20050816
  Transmission Date: 20060701
  Serious: No
  Sender: FDA-Public Use
  Company Number: US-GLAXOSMITHKLINE-A0570448A

PATIENT
  Age: 58 Year
  Sex: Female

DRUGS (4)
  1. PAXIL [Suspect]
     Dosage: 10MG PER DAY
     Route: 048
  2. PAXIL CR [Suspect]
     Dosage: 12.5MG PER DAY
     Route: 048
  3. PAROXETINE HCL [Suspect]
     Dosage: 10MG PER DAY
     Route: 048
  4. HYDROCHLOROTHIAZIDE [Concomitant]

REACTIONS (3)
  - DRUG INEFFECTIVE [None]
  - HEADACHE [None]
  - RASH [None]
